FAERS Safety Report 25194701 (Version 5)
Quarter: 2025Q4

REPORT INFORMATION
  Report Type: Report from Study
  Country: US (occurrence: US)
  Receive Date: 20250414
  Receipt Date: 20251224
  Transmission Date: 20260118
  Serious: Yes (Hospitalization, Other)
  Sender: ABBVIE
  Company Number: US-ABBVIE-6221525

PATIENT
  Age: 65 Year
  Sex: Female
  Weight: 68 kg

DRUGS (5)
  1. RINVOQ [Suspect]
     Active Substance: UPADACITINIB
     Indication: Colitis ulcerative
     Route: 048
  2. RINVOQ [Suspect]
     Active Substance: UPADACITINIB
     Indication: Colitis ulcerative
     Route: 048
  3. RINVOQ [Suspect]
     Active Substance: UPADACITINIB
     Indication: Colitis ulcerative
     Route: 048
     Dates: start: 20241101
  4. KLONOPIN [Suspect]
     Active Substance: CLONAZEPAM
     Indication: Product used for unknown indication
     Route: 065
  5. PREDNISONE [Suspect]
     Active Substance: PREDNISONE
     Indication: Product used for unknown indication
     Route: 065

REACTIONS (13)
  - Gait inability [Unknown]
  - Pelvic pain [Recovering/Resolving]
  - Back pain [Recovering/Resolving]
  - Haemoglobin abnormal [Recovered/Resolved]
  - Pelvic fracture [Recovering/Resolving]
  - Osteoporosis [Unknown]
  - Gait inability [Recovering/Resolving]
  - Colitis ulcerative [Recovering/Resolving]
  - Dizziness [Unknown]
  - Cushingoid [Unknown]
  - Fall [Recovered/Resolved]
  - Weight increased [Unknown]
  - Alopecia [Unknown]

NARRATIVE: CASE EVENT DATE: 20250101
